FAERS Safety Report 25380075 (Version 1)
Quarter: 2025Q2

REPORT INFORMATION
  Report Type: Spontaneous
  Country: CZ (occurrence: CZ)
  Receive Date: 20250530
  Receipt Date: 20250530
  Transmission Date: 20250716
  Serious: Yes (Hospitalization, Other)
  Sender: BRISTOL-MYERS SQUIBB COMPANY
  Company Number: CZ-BRISTOL-MYERS SQUIBB COMPANY-2025-076043

PATIENT
  Age: 59 Year
  Sex: Male

DRUGS (5)
  1. OPDIVO [Suspect]
     Active Substance: NIVOLUMAB
     Indication: Adenocarcinoma
     Dates: start: 202204
  2. OPDIVO [Suspect]
     Active Substance: NIVOLUMAB
     Dates: start: 202207
  3. OPDIVO [Suspect]
     Active Substance: NIVOLUMAB
     Dates: start: 202208
  4. OPDIVO [Suspect]
     Active Substance: NIVOLUMAB
     Dates: end: 202404
  5. YERVOY [Suspect]
     Active Substance: IPILIMUMAB
     Indication: Adenocarcinoma
     Dates: start: 202204

REACTIONS (5)
  - Pancreatitis acute [Recovering/Resolving]
  - Immune-mediated pancreatitis [Recovered/Resolved]
  - Vitiligo [Unknown]
  - Clostridium difficile colitis [Recovering/Resolving]
  - Device related sepsis [Unknown]

NARRATIVE: CASE EVENT DATE: 20220701
